FAERS Safety Report 16067213 (Version 1)
Quarter: 2019Q1

REPORT INFORMATION
  Report Type: Spontaneous
  Country: US (occurrence: US)
  Receive Date: 20190313
  Receipt Date: 20190313
  Transmission Date: 20190418
  Serious: Yes (Other)
  Sender: FDA-Public Use
  Company Number: US-ELI_LILLY_AND_COMPANY-US201903000822

PATIENT
  Sex: Male

DRUGS (2)
  1. BASAGLAR [Suspect]
     Active Substance: INSULIN GLARGINE
     Indication: TYPE 1 DIABETES MELLITUS
     Dosage: 40 IU, NIGHTLY
     Route: 065
  2. HUMALOG [Suspect]
     Active Substance: INSULIN LISPRO
     Indication: TYPE 1 DIABETES MELLITUS
     Dosage: UNK, TID, SLIDING SCALE BASIS
     Route: 065

REACTIONS (8)
  - Hypertension [Unknown]
  - Memory impairment [Unknown]
  - Eye haemorrhage [Unknown]
  - Neuropathy peripheral [Unknown]
  - Superficial injury of eye [Unknown]
  - Eye swelling [Unknown]
  - Seizure [Unknown]
  - Blood cholesterol increased [Unknown]
